FAERS Safety Report 16346787 (Version 1)
Quarter: 2019Q2

REPORT INFORMATION
  Report Type: Spontaneous
  Country: US (occurrence: US)
  Receive Date: 20190523
  Receipt Date: 20190523
  Transmission Date: 20190711
  Serious: No
  Sender: FDA-Public Use
  Company Number: US-LEXICON PHARMACEUTICALS, INC-19-1606-00512

PATIENT
  Sex: Male

DRUGS (16)
  1. TELOTRISTAT ETHYL [Suspect]
     Active Substance: TELOTRISTAT ETHYL
     Indication: NEUROENDOCRINE TUMOUR
  2. SOMATULINE [Concomitant]
     Active Substance: LANREOTIDE ACETATE
  3. VOLTAREN [Concomitant]
     Active Substance: DICLOFENAC SODIUM
  4. ALPHAGAN P [Concomitant]
     Active Substance: BRIMONIDINE TARTRATE
  5. PAXIL [Concomitant]
     Active Substance: PAROXETINE HYDROCHLORIDE
  6. SYNTHROID [Concomitant]
     Active Substance: LEVOTHYROXINE SODIUM
  7. MAPAP [Concomitant]
     Active Substance: ACETAMINOPHEN
  8. PROTONIX [Concomitant]
     Active Substance: PANTOPRAZOLE SODIUM
  9. CREON [Concomitant]
     Active Substance: PANCRELIPASE AMYLASE\PANCRELIPASE LIPASE\PANCRELIPASE PROTEASE
  10. TELOTRISTAT ETHYL [Suspect]
     Active Substance: TELOTRISTAT ETHYL
     Indication: CARCINOID SYNDROME
     Route: 048
     Dates: start: 20190421
  11. ALLOPURINOL. [Concomitant]
     Active Substance: ALLOPURINOL
  12. AMBIEN [Concomitant]
     Active Substance: ZOLPIDEM TARTRATE
  13. RESTASIS [Concomitant]
     Active Substance: CYCLOSPORINE
  14. DOXYCYCLINE. [Concomitant]
     Active Substance: DOXYCYCLINE
  15. ASPIRIN. [Concomitant]
     Active Substance: ASPIRIN
  16. ZESTRIL [Concomitant]
     Active Substance: LISINOPRIL

REACTIONS (1)
  - Rash [Not Recovered/Not Resolved]
